FAERS Safety Report 12242292 (Version 1)
Quarter: 2016Q2

REPORT INFORMATION
  Report Type: Spontaneous
  Country: US (occurrence: US)
  Receive Date: 20160406
  Receipt Date: 20160406
  Transmission Date: 20160815
  Serious: Yes (Other)
  Sender: FDA-Public Use
  Company Number: US-NOVOPROD-478575

PATIENT
  Age: 59 Year
  Sex: Male

DRUGS (1)
  1. GLUCAGEN HYPOKIT [Suspect]
     Active Substance: GLUCAGON HYDROCHLORIDE
     Indication: HYPOGLYCAEMIC UNCONSCIOUSNESS
     Dosage: UNK
     Dates: start: 201601, end: 201601

REACTIONS (3)
  - Underdose [Recovered/Resolved]
  - Hypoglycaemic unconsciousness [Recovered/Resolved]
  - Product label confusion [Not Recovered/Not Resolved]

NARRATIVE: CASE EVENT DATE: 201601
